FAERS Safety Report 13411059 (Version 2)
Quarter: 2018Q1

REPORT INFORMATION
  Report Type: Spontaneous
  Country: US (occurrence: US)
  Receive Date: 20170406
  Receipt Date: 20180118
  Transmission Date: 20180508
  Serious: No
  Sender: FDA-Public Use
  Company Number: US-JNJFOC-20170304665

PATIENT
  Sex: Male

DRUGS (11)
  1. RISPERDAL [Suspect]
     Active Substance: RISPERIDONE
     Indication: BIPOLAR DISORDER
     Dosage: 1 MG, 2 MG AND 3 MG IN VARYING FREQUENCY
     Route: 048
     Dates: start: 20091201, end: 20100203
  2. RISPERIDONE. [Suspect]
     Active Substance: RISPERIDONE
     Indication: BIPOLAR DISORDER
     Route: 048
     Dates: start: 20091210, end: 20100204
  3. RISPERDAL [Suspect]
     Active Substance: RISPERIDONE
     Indication: BIPOLAR DISORDER
     Dosage: IN VARYING FREQUENCY
     Route: 048
     Dates: start: 20080421, end: 20080731
  4. RISPERDAL [Suspect]
     Active Substance: RISPERIDONE
     Indication: OPPOSITIONAL DEFIANT DISORDER
     Dosage: IN VARYING FREQUENCY
     Route: 048
     Dates: start: 20080421, end: 20080731
  5. RISPERDAL [Suspect]
     Active Substance: RISPERIDONE
     Indication: AFFECTIVE DISORDER
     Dosage: 1 MG, 2 MG AND 3 MG IN VARYING FREQUENCY
     Route: 048
     Dates: start: 20091201, end: 20100203
  6. RISPERIDONE. [Suspect]
     Active Substance: RISPERIDONE
     Indication: PRODUCT USED FOR UNKNOWN INDICATION
     Route: 065
  7. RISPERDAL [Suspect]
     Active Substance: RISPERIDONE
     Indication: AFFECTIVE DISORDER
     Dosage: IN VARYING FREQUENCY
     Route: 048
     Dates: start: 20080421, end: 20080731
  8. RISPERDAL [Suspect]
     Active Substance: RISPERIDONE
     Indication: CONDUCT DISORDER
     Dosage: 1 MG, 2 MG AND 3 MG IN VARYING FREQUENCY
     Route: 048
     Dates: start: 20091201, end: 20100203
  9. RISPERDAL [Suspect]
     Active Substance: RISPERIDONE
     Indication: OPPOSITIONAL DEFIANT DISORDER
     Dosage: 1 MG, 2 MG AND 3 MG IN VARYING FREQUENCY
     Route: 048
     Dates: start: 20091201, end: 20100203
  10. RISPERIDONE. [Suspect]
     Active Substance: RISPERIDONE
     Indication: OPPOSITIONAL DEFIANT DISORDER
     Route: 048
     Dates: start: 20091210, end: 20100204
  11. RISPERDAL [Suspect]
     Active Substance: RISPERIDONE
     Indication: CONDUCT DISORDER
     Dosage: IN VARYING FREQUENCY
     Route: 048
     Dates: start: 20080421, end: 20080731

REACTIONS (2)
  - Emotional disorder [Unknown]
  - Gynaecomastia [Unknown]
